FAERS Safety Report 12791578 (Version 1)
Quarter: 2016Q3

REPORT INFORMATION
  Report Type: Other
  Country: ES (occurrence: ES)
  Receive Date: 20160929
  Receipt Date: 20160929
  Transmission Date: 20161109
  Serious: Yes (Other)
  Sender: FDA-Public Use
  Company Number: ES-HIKMA PHARMACEUTICALS CO. LTD-2016ES009347

PATIENT

DRUGS (7)
  1. REMSIMA [Suspect]
     Active Substance: INFLIXIMAB
     Indication: PSORIATIC ARTHROPATHY
     Dosage: 342 MG, MONTHLY
     Route: 042
     Dates: start: 20150924, end: 20150924
  2. REMSIMA [Suspect]
     Active Substance: INFLIXIMAB
     Dosage: 342 MG, MONTHLY
     Route: 042
     Dates: start: 20151008, end: 20151008
  3. REMSIMA [Suspect]
     Active Substance: INFLIXIMAB
     Dosage: UNK, EVERY 8 WEEKS
     Route: 065
     Dates: start: 201601, end: 201601
  4. REMSIMA [Suspect]
     Active Substance: INFLIXIMAB
     Dosage: UNK, EVERY 8 WEEKS
     Route: 065
  5. REMSIMA [Suspect]
     Active Substance: INFLIXIMAB
     Dosage: 342 MG, MONTHLY
     Route: 042
     Dates: start: 20151110, end: 20151110
  6. REMSIMA [Suspect]
     Active Substance: INFLIXIMAB
     Dosage: UNK, EVERY 8 WEEKS
     Route: 065
  7. REMSIMA [Suspect]
     Active Substance: INFLIXIMAB
     Dosage: UNK, EVERY 8 WEEKS
     Route: 065

REACTIONS (2)
  - Condition aggravated [Unknown]
  - Pustular psoriasis [Recovering/Resolving]

NARRATIVE: CASE EVENT DATE: 201510
